FAERS Safety Report 13423082 (Version 2)
Quarter: 2017Q2

REPORT INFORMATION
  Report Type: Spontaneous
  Country: FR (occurrence: FR)
  Receive Date: 20170410
  Receipt Date: 20170411
  Transmission Date: 20170830
  Serious: Yes (Hospitalization)
  Sender: FDA-Public Use
  Company Number: FR-009507513-1704FRA002407

PATIENT
  Age: 44 Year
  Sex: Female

DRUGS (10)
  1. EMEND [Suspect]
     Active Substance: APREPITANT
     Indication: PROPHYLAXIS
     Dosage: 1 DF,(1 DF, 1 PER DAY)
     Route: 048
     Dates: start: 20170320, end: 20170320
  2. PACLITAXEL. [Suspect]
     Active Substance: PACLITAXEL
     Indication: OVARIAN CANCER
     Dosage: STRENGTH 6 MG/ML; 282 MG, (282 MG 1 PER DAY)
     Route: 042
     Dates: start: 20170320, end: 20170320
  3. TRILEPTAL [Concomitant]
     Active Substance: OXCARBAZEPINE
     Indication: EPILEPSY
     Dosage: 300 MG, (300 MG, 1 PER DAY)
  4. RANITIDINE. [Suspect]
     Active Substance: RANITIDINE
     Indication: PROPHYLAXIS
     Dosage: 50 MG, SINGLE DOSE
     Route: 042
     Dates: start: 20170320, end: 20170320
  5. ONDANSETRON [Suspect]
     Active Substance: ONDANSETRON
     Indication: PROPHYLAXIS
     Dosage: 8 MG, SINGLE DOSE
     Route: 042
     Dates: start: 20170320, end: 20170320
  6. POLARAMINE [Suspect]
     Active Substance: DEXCHLORPHENIRAMINE MALEATE
     Indication: PROPHYLAXIS
     Dosage: STRENGTH 5MG/1ML; 1 DF, (1 DF, 1 PER DAY)
     Route: 042
     Dates: start: 20170320, end: 20170320
  7. METHYLPREDNISOLONE. [Suspect]
     Active Substance: METHYLPREDNISOLONE
     Indication: PROPHYLAXIS
     Dosage: 40 MG, (40 MG 1ER DAY)
     Route: 042
     Dates: start: 20170320, end: 20170320
  8. KEPPRA [Concomitant]
     Active Substance: LEVETIRACETAM
     Indication: EPILEPSY
     Dosage: 250 MG, (250 MG, 1 PER DAY)
     Route: 048
  9. PANTOPRAZOLE [Concomitant]
     Active Substance: PANTOPRAZOLE
     Dosage: 20 MG, (20 MG, 1 PER DAY)
     Route: 048
  10. CARBOPLATIN. [Suspect]
     Active Substance: CARBOPLATIN
     Indication: OVARIAN CANCER
     Dosage: STRENGTH 10 MG/ML; 420 MG, (420 MG, 1 PER DAY)
     Route: 042
     Dates: start: 20170320, end: 20170320

REACTIONS (2)
  - Seizure [Recovered/Resolved]
  - Hypotension [Recovered/Resolved]

NARRATIVE: CASE EVENT DATE: 20170320
